FAERS Safety Report 19384541 (Version 2)
Quarter: 2024Q1

REPORT INFORMATION
  Report Type: Report from Study
  Country: BR (occurrence: BR)
  Receive Date: 20210607
  Receipt Date: 20240321
  Transmission Date: 20240410
  Serious: Yes (Hospitalization, Other)
  Sender: FDA-Public Use
  Company Number: BR-TAKEDA-2021TUS035273

PATIENT
  Age: 47 Year
  Sex: Male

DRUGS (9)
  1. HEMO-8R [Suspect]
     Active Substance: ANTIHEMOPHILIC FACTOR, HUMAN RECOMBINANT
     Indication: Factor VIII deficiency
     Dosage: UNK
     Route: 042
  2. HEMO-8R [Suspect]
     Active Substance: ANTIHEMOPHILIC FACTOR, HUMAN RECOMBINANT
     Dosage: 2500 INTERNATIONAL UNIT, 3/WEEK
     Route: 065
  3. PANTOPRAZOLE [Concomitant]
     Active Substance: PANTOPRAZOLE
     Dosage: UNK
     Route: 065
  4. PREDNISONE [Concomitant]
     Active Substance: PREDNISONE
     Indication: Pain
     Dosage: UNK
     Route: 065
     Dates: start: 2021
  5. ELECTROLYTES NOS\POLYETHYLENE GLYCOL 3350 [Concomitant]
     Active Substance: ELECTROLYTES NOS\POLYETHYLENE GLYCOL 3350
     Indication: Intestinal obstruction
     Dosage: UNK
     Route: 065
  6. DOMPERIDONE [Concomitant]
     Active Substance: DOMPERIDONE
     Dosage: UNK
     Route: 065
  7. DIPYRONE [Concomitant]
     Active Substance: DIPYRONE
     Indication: Pain
     Dosage: UNK
     Route: 065
  8. DIMETHICONE [Concomitant]
     Active Substance: DIMETHICONE
     Indication: Flatulence
     Route: 065
  9. STELARA [Concomitant]
     Active Substance: USTEKINUMAB
     Dosage: 90 MILLIGRAM, MONTHLY
     Route: 065
     Dates: start: 2021

REACTIONS (6)
  - Intestinal obstruction [Unknown]
  - Haemorrhagic stroke [Unknown]
  - Hernia [Unknown]
  - Crohn^s disease [Unknown]
  - Irritable bowel syndrome [Unknown]
  - Arthralgia [Recovering/Resolving]

NARRATIVE: CASE EVENT DATE: 20191101
